FAERS Safety Report 7608119-9 (Version None)
Quarter: 2011Q3

REPORT INFORMATION
  Report Type: 
  Country: None (occurrence: None)
  Receive Date: 20110706
  Receipt Date: 20110620
  Transmission Date: 20111222
  Serious: Yes (Hospitalization, Other)
  Sender: FDA-Public Use
  Company Number: 2010SP056522

PATIENT
  Age: 27 Year
  Sex: Female
  Weight: 88.4514 kg

DRUGS (2)
  1. NUVARING [Suspect]
     Indication: OVARIAN CYST
     Dates: start: 20050101, end: 20050301
  2. NUVARING [Suspect]
     Indication: CONTRACEPTION
     Dates: start: 20050101, end: 20050301

REACTIONS (13)
  - HEADACHE [None]
  - THALAMIC INFARCTION [None]
  - VOMITING [None]
  - PAIN [None]
  - ENCEPHALOMALACIA [None]
  - CEREBROVASCULAR ACCIDENT [None]
  - CEREBELLAR HAEMORRHAGE [None]
  - NAUSEA [None]
  - CEREBRAL VENOUS THROMBOSIS [None]
  - ARTHRALGIA [None]
  - TRANSVERSE SINUS THROMBOSIS [None]
  - SUBARACHNOID HAEMORRHAGE [None]
  - DEEP VEIN THROMBOSIS [None]
